FAERS Safety Report 4762259-0 (Version None)
Quarter: 2005Q3

REPORT INFORMATION
  Report Type: 
  Country: None (occurrence: None)
  Receive Date: 20050907
  Receipt Date: 20050801
  Transmission Date: 20060218
  Serious: Yes (Other)
  Sender: FDA-Public Use
  Company Number: JP-SP-2005-01445

PATIENT
  Age: 70 Year
  Sex: Male

DRUGS (6)
  1. IMMUCYST [Suspect]
     Indication: BLADDER CANCER
     Route: 043
     Dates: start: 20041221, end: 20050315
  2. CEFDINIR [Concomitant]
     Indication: CYSTITIS
     Dates: start: 20050111, end: 20050208
  3. TRANEXAMIC ACID [Concomitant]
     Indication: HAEMATURIA
     Dates: start: 20050111
  4. LOXOPROFEN SODIUM [Concomitant]
     Indication: ABDOMINAL PAIN
     Dates: start: 20050125
  5. PROPIVERINE HYDROCHLORIDE [Concomitant]
     Indication: POLLAKIURIA
     Dates: start: 20050204, end: 20050412
  6. CEFCAPENE PIVOXIL HYDROCHLORIDE [Concomitant]
     Indication: CYSTITIS
     Dates: start: 20050208, end: 20050516

REACTIONS (4)
  - DYSURIA [None]
  - HAEMATURIA [None]
  - POLLAKIURIA [None]
  - TUBERCULOSIS BLADDER [None]
